FAERS Safety Report 26123051 (Version 1)
Quarter: 2025Q4

REPORT INFORMATION
  Report Type: Spontaneous
  Country: US (occurrence: None)
  Receive Date: 20251204
  Receipt Date: 20251204
  Transmission Date: 20260119
  Serious: No
  Sender: HALOZYME
  Company Number: US-HALOZYME THERAPEUTICS, INC.-2025-US-HYL-05488

PATIENT
  Age: 41 Year
  Weight: 36.281 kg

DRUGS (4)
  1. HYLENEX RECOMBINANT [Suspect]
     Active Substance: HYALURONIDASE (HUMAN RECOMBINANT)
     Indication: Dermal filler overcorrection
     Dosage: UNK
  2. ADDERALL [Concomitant]
     Active Substance: AMPHETAMINE ASPARTATE\AMPHETAMINE SULFATE\DEXTROAMPHETAMINE SACCHARATE\DEXTROAMPHETAMINE SULFATE
  3. SPIRONOLACTONE [Concomitant]
     Active Substance: SPIRONOLACTONE
  4. VITAMINS NOS [Concomitant]
     Active Substance: VITAMINS

REACTIONS (21)
  - Malaise [Recovering/Resolving]
  - Pseudostroke [Recovering/Resolving]
  - Limb discomfort [Recovering/Resolving]
  - Muscle atrophy [Recovering/Resolving]
  - Musculoskeletal pain [Recovering/Resolving]
  - Cellulite [Recovering/Resolving]
  - Skin laxity [Recovering/Resolving]
  - Amenorrhoea [Recovering/Resolving]
  - Blood oestrogen abnormal [Recovering/Resolving]
  - Gastrointestinal disorder [Recovering/Resolving]
  - Swelling [Recovering/Resolving]
  - Arthralgia [Recovering/Resolving]
  - Exercise tolerance decreased [Recovering/Resolving]
  - Lethargy [Unknown]
  - Somnolence [Unknown]
  - Infectious mononucleosis [Unknown]
  - Alopecia [Unknown]
  - Alopecia [Unknown]
  - Eyelash changes [Unknown]
  - Photosensitivity reaction [Unknown]
  - Off label use [Unknown]
